FAERS Safety Report 6885336-7 (Version None)
Quarter: 2010Q3

REPORT INFORMATION
  Report Type: 
  Country: None (occurrence: None)
  Receive Date: 20100727
  Receipt Date: 20100716
  Transmission Date: 20110219
  Serious: Yes (Death)
  Sender: FDA-Public Use
  Company Number: 2010070034

PATIENT
  Age: 58 Year
  Sex: Female

DRUGS (21)
  1. ONSOLIS [Suspect]
     Indication: CANCER PAIN
     Dosage: BU
     Route: 002
     Dates: start: 20100503, end: 20100621
  2. LORAZEPAM [Concomitant]
  3. OXYCODONE [Concomitant]
  4. ACTIQ (FENTANYL) [Concomitant]
  5. FENTANYL [Concomitant]
  6. TEMAZEPAM [Concomitant]
  7. MODAFINIL [Concomitant]
  8. BISACODYL [Concomitant]
  9. SO,ETJOCPME [Concomitant]
  10. ASCORBIC ACID [Concomitant]
  11. SALMETEROL [Concomitant]
  12. PYRIDOXINE HCL [Concomitant]
  13. PANTOPRAZOLE [Concomitant]
  14. ONDANSETRON [Concomitant]
  15. FISH OIL [Concomitant]
  16. MEGESTROL [Concomitant]
  17. ALBUTEROL [Concomitant]
  18. LACTASE (LACTOSE-PHLORIZIN HYDROLASE) [Concomitant]
  19. CYANOCOBALAMIN [Concomitant]
  20. CHOLECALCIFEROL [Concomitant]
  21. CALCIUM CARBONATE [Concomitant]

REACTIONS (1)
  - DEATH [None]
